FAERS Safety Report 19261024 (Version 20)
Quarter: 2023Q2

REPORT INFORMATION
  Report Type: Report from Study
  Country: CN (occurrence: CN)
  Receive Date: 20210515
  Receipt Date: 20230501
  Transmission Date: 20230722
  Serious: Yes (Hospitalization, Other)
  Sender: FDA-Public Use
  Company Number: CN-TAKEDA-2021TUS026187

PATIENT
  Age: 57 Year
  Sex: Female
  Weight: 85 kg

DRUGS (12)
  1. IXAZOMIB [Suspect]
     Active Substance: IXAZOMIB
     Indication: Plasma cell myeloma
     Dosage: 4 MILLIGRAM, 1/WEEK
     Route: 048
     Dates: start: 202101, end: 20220311
  2. DEXAMETHASONE ACETATE [Suspect]
     Active Substance: DEXAMETHASONE ACETATE
     Indication: Plasma cell myeloma
     Dosage: 0.75 MILLIGRAM
     Route: 048
     Dates: start: 202101
  3. LITHIUM CARBONATE [Concomitant]
     Active Substance: LITHIUM CARBONATE
     Indication: Mental disorder
     Dosage: 0.25 GRAM, TID
     Route: 048
     Dates: start: 2011
  4. CLOZAPINE [Concomitant]
     Active Substance: CLOZAPINE
     Indication: Mental disorder
     Dosage: 25 MILLIGRAM, BID
     Route: 048
     Dates: start: 2011
  5. ONDANSETRON HYDROCHLORIDE [Concomitant]
     Active Substance: ONDANSETRON HYDROCHLORIDE
     Indication: Prophylaxis of nausea and vomiting
     Dosage: 4 MILLIGRAM, TID
     Route: 048
     Dates: start: 20210322, end: 20210324
  6. HERBALS\DIAMMONIUM GLYCYRRHIZINATE [Concomitant]
     Active Substance: HERBALS\DIAMMONIUM GLYCYRRHIZINATE
     Indication: Prophylaxis
     Dosage: 150 MILLIGRAM, TID
     Route: 048
     Dates: start: 20210322, end: 20210324
  7. LEUCOGEN [Concomitant]
     Active Substance: LEUCOGEN
     Indication: Prophylaxis
     Dosage: 20 MILLIGRAM, TID
     Route: 048
     Dates: start: 20210322, end: 20210406
  8. LEVOGLUTAMIDE;SODIUM GUALENATE [Concomitant]
     Indication: Prophylaxis
     Dosage: 0.67 MILLIGRAM, TID
     Route: 048
     Dates: start: 20210322, end: 20210326
  9. HYDROTALCITE [Concomitant]
     Active Substance: HYDROTALCITE
     Indication: Prophylaxis
     Dosage: 0.5 MILLIGRAM, TID
     Route: 048
     Dates: start: 20210322, end: 20210406
  10. PREGABALIN [Concomitant]
     Active Substance: PREGABALIN
     Indication: Analgesic therapy
     Dosage: 75 MILLIGRAM, BID
     Route: 048
     Dates: start: 20210322, end: 20210327
  11. LENALIDOMIDE [Concomitant]
     Active Substance: LENALIDOMIDE
     Indication: Plasma cell myeloma
     Dosage: 15 MILLILITER, QD
     Route: 048
     Dates: start: 20210706
  12. PANTOPRAZOLE SODIUM [Concomitant]
     Active Substance: PANTOPRAZOLE SODIUM
     Indication: Abdominal discomfort
     Dosage: 40 MILLIGRAM, QD
     Route: 065
     Dates: start: 20210806

REACTIONS (15)
  - Pneumonia [Recovering/Resolving]
  - Myelosuppression [Recovering/Resolving]
  - Hypokalaemia [Recovered/Resolved]
  - Productive cough [Recovered/Resolved]
  - Herpes virus infection [Recovering/Resolving]
  - Hypocalcaemia [Recovering/Resolving]
  - Face oedema [Recovering/Resolving]
  - Neutrophil count decreased [Recovering/Resolving]
  - Platelet count decreased [Recovered/Resolved]
  - Oedema peripheral [Recovering/Resolving]
  - Constipation [Recovered/Resolved]
  - Rash [Not Recovered/Not Resolved]
  - White blood cell count decreased [Recovered/Resolved]
  - Tri-iodothyronine decreased [Recovered/Resolved]
  - Hyperuricaemia [Not Recovered/Not Resolved]

NARRATIVE: CASE EVENT DATE: 20210418
